FAERS Safety Report 8486190-2 (Version None)
Quarter: 2012Q3

REPORT INFORMATION
  Report Type: 
  Country: None (occurrence: None)
  Receive Date: 20120703
  Receipt Date: 20120625
  Transmission Date: 20120928
  Serious: Yes (Other)
  Sender: FDA-Public Use
  Company Number: JP-FRI-1000036829

PATIENT
  Age: 82 Year
  Sex: Male

DRUGS (1)
  1. MEMANTINE HCL [Suspect]
     Indication: DEMENTIA
     Dosage: 5 MG
     Route: 048
     Dates: start: 20120610, end: 20120618

REACTIONS (1)
  - CHOLESTASIS [None]
